FAERS Safety Report 15982109 (Version 1)
Quarter: 2019Q1

REPORT INFORMATION
  Report Type: Report from Study
  Country: IT (occurrence: IT)
  Receive Date: 20190219
  Receipt Date: 20190219
  Transmission Date: 20190418
  Serious: Yes (Other)
  Sender: FDA-Public Use
  Company Number: IT-BAYER-2019-032480

PATIENT
  Age: 58 Year
  Sex: Male

DRUGS (1)
  1. ASPIRINA [Suspect]
     Active Substance: ASPIRIN
     Indication: INFLUENZA
     Dosage: 1 DF, ONCE
     Route: 048
     Dates: start: 20190109, end: 20190109

REACTIONS (2)
  - Dyspnoea [Recovered/Resolved]
  - Erythema [Recovered/Resolved]

NARRATIVE: CASE EVENT DATE: 20190109
